FAERS Safety Report 5724558-5 (Version None)
Quarter: 2008Q2

REPORT INFORMATION
  Report Type: 
  Country: None (occurrence: None)
  Receive Date: 20080430
  Receipt Date: 20080430
  Transmission Date: 20081010
  Serious: Yes (Other)
  Sender: FDA-Public Use
  Company Number: None

PATIENT
  Age: 55 Year
  Sex: Male
  Weight: 67.5 kg

DRUGS (9)
  1. GAMUNEX [Suspect]
     Dosage: 140GM IV MONTHLY
     Route: 042
     Dates: start: 20070913
  2. GAMUNEX [Suspect]
     Dosage: 140GM IV MONTHLY
     Route: 042
     Dates: start: 20071011
  3. CALCIUM CARB/VIT D [Concomitant]
  4. M.V.I. [Concomitant]
  5. METOPROLOL SUCCINATE [Concomitant]
  6. TACROLIMUS [Concomitant]
  7. LISINOPRIL [Concomitant]
  8. ASPIRIN [Concomitant]
  9. ATORVASTATIN [Concomitant]

REACTIONS (1)
  - BLOOD PRESSURE DECREASED [None]
